FAERS Safety Report 16958762 (Version 1)
Quarter: 2019Q4

REPORT INFORMATION
  Report Type: Spontaneous
  Country: CA (occurrence: CA)
  Receive Date: 20191024
  Receipt Date: 20191024
  Transmission Date: 20200122
  Serious: Yes (Other)
  Sender: FDA-Public Use
  Company Number: CA-PFIZER INC-2019454576

PATIENT
  Age: 68 Year
  Sex: Male

DRUGS (28)
  1. EPOETIN ALFA [Suspect]
     Active Substance: ERYTHROPOIETIN
     Dosage: 6000 IU, 3 EVERY 1 WEEK
     Route: 042
  2. EPOETIN ALFA [Suspect]
     Active Substance: ERYTHROPOIETIN
     Dosage: 10000 IU, 3 EVERY 1 WEEK
     Route: 042
  3. EPOETIN ALFA [Suspect]
     Active Substance: ERYTHROPOIETIN
     Dosage: 8000 IU, WEEKLY (1 EVERY 1 WEEK)
     Route: 058
  4. DIMENHYDRINATE. [Concomitant]
     Active Substance: DIMENHYDRINATE
     Dosage: 50 MG, EVERY 6 HOURS
     Route: 048
  5. MACROGOL 3350 [Concomitant]
     Active Substance: POLYETHYLENE GLYCOL 3350
     Dosage: 17 G, 1X/DAY
     Route: 048
  6. EPOETIN ALFA [Suspect]
     Active Substance: ERYTHROPOIETIN
     Dosage: 6000 IU, 3 EVERY 1 WEEK
     Route: 042
  7. CLOBAZAM. [Concomitant]
     Active Substance: CLOBAZAM
     Dosage: 10 MG, 2X/DAY
     Route: 048
  8. MELATONIN [Concomitant]
     Active Substance: MELATONIN
     Dosage: 3 MG, UNK
     Route: 048
  9. UREA. [Concomitant]
     Active Substance: UREA
     Dosage: 1 DF, 2X/DAY
     Route: 061
  10. EPOETIN ALFA [Suspect]
     Active Substance: ERYTHROPOIETIN
     Dosage: 6000 IU, 3 EVERY 1 WEEK
     Route: 042
  11. EPOETIN ALFA [Suspect]
     Active Substance: ERYTHROPOIETIN
     Dosage: 10000 IU, 3 EVERY 1 WEEK
     Route: 042
  12. EPOETIN ALFA [Suspect]
     Active Substance: ERYTHROPOIETIN
     Dosage: 10000 IU, WEEKLY (1 EVERY 1 WEEK)
     Route: 058
  13. EPOETIN ALFA [Suspect]
     Active Substance: ERYTHROPOIETIN
     Dosage: 5000 IU, WEEKLY (1 EVERY 1 WEEK)
     Route: 058
  14. PHENYTOIN. [Suspect]
     Active Substance: PHENYTOIN
     Indication: PRODUCT USED FOR UNKNOWN INDICATION
     Dosage: UNK
     Route: 065
  15. ANAKINRA [Suspect]
     Active Substance: ANAKINRA
     Indication: PRODUCT USED FOR UNKNOWN INDICATION
     Dosage: 200 MG, ALTERNATE DAY (1 EVERY 2 DAYS)
     Route: 058
  16. CARBAMAZEPINE. [Suspect]
     Active Substance: CARBAMAZEPINE
     Indication: PRODUCT USED FOR UNKNOWN INDICATION
     Dosage: 200 MG, ALTERNATE DAY (1 EVERY 2 DAYS)
     Route: 048
  17. EPOETIN ALFA [Suspect]
     Active Substance: ERYTHROPOIETIN
     Indication: NEPHROGENIC ANAEMIA
     Dosage: 6000 IU, 3 EVERY 1 WEEK
     Route: 042
  18. ACETAMINOPHEN. [Concomitant]
     Active Substance: ACETAMINOPHEN
     Dosage: 500 MG, EVERY 6 HOURS
     Route: 048
  19. SENNOSIDES A+B CALCIUM [Concomitant]
     Active Substance: SENNOSIDES A AND B
     Dosage: 8.6 MG, 2X/DAY
     Route: 048
  20. METHADONE HYDROCHLORIDE. [Concomitant]
     Active Substance: METHADONE HYDROCHLORIDE
     Dosage: 10 MG, EVERY 3 HOURS
     Route: 048
  21. METHADONE HYDROCHLORIDE. [Concomitant]
     Active Substance: METHADONE HYDROCHLORIDE
     Dosage: 20 MG (2) EVERY 3 DAY
     Route: 048
  22. VENLAFAXINE HYDROCHLORIDE. [Concomitant]
     Active Substance: VENLAFAXINE HYDROCHLORIDE
     Dosage: 75 MG, 1X/DAY
     Route: 048
  23. EPOETIN ALFA [Suspect]
     Active Substance: ERYTHROPOIETIN
     Dosage: 8000 IU, WEEKLY (1 EVERY 1 WEEK)
     Route: 058
  24. VALPROIC ACID. [Suspect]
     Active Substance: VALPROIC ACID
     Indication: PRODUCT USED FOR UNKNOWN INDICATION
     Dosage: UNK
     Route: 065
  25. LACTULOSE. [Concomitant]
     Active Substance: LACTULOSE
     Dosage: 30 ML, 2X/DAY
     Route: 048
  26. EPOETIN ALFA [Suspect]
     Active Substance: ERYTHROPOIETIN
     Dosage: 10000 IU, WEEKLY (1 EVERY 1 WEEK)
     Route: 058
  27. EPOETIN ALFA [Suspect]
     Active Substance: ERYTHROPOIETIN
     Dosage: 5000 IU, WEEKLY (1 EVERY 1 WEEK)
     Route: 058
  28. LORATADINE. [Concomitant]
     Active Substance: LORATADINE
     Dosage: 10 MG, 2X/DAY
     Route: 048

REACTIONS (4)
  - Anti-erythropoietin antibody negative [Recovered/Resolved]
  - Escherichia bacteraemia [Recovered/Resolved]
  - Hyperparathyroidism [Recovered/Resolved]
  - Pancytopenia [Recovered/Resolved]
